FAERS Safety Report 5166524-7 (Version None)
Quarter: 2006Q4

REPORT INFORMATION
  Report Type: 
  Country: None (occurrence: None)
  Receive Date: 20061207
  Receipt Date: 20061031
  Transmission Date: 20070319
  Serious: Yes (Other)
  Sender: FDA-Public Use
  Company Number: PHBS2006JP17100

PATIENT

DRUGS (2)
  1. TEGRETOL [Suspect]
     Dosage: 150 MG, BID
     Route: 048
  2. TEGRETOL [Suspect]
     Dosage: 175 MG, BID
     Route: 048

REACTIONS (3)
  - ABDOMINAL PAIN [None]
  - GASTROINTESTINAL INFECTION [None]
  - NAUSEA [None]
